FAERS Safety Report 16201393 (Version 2)
Quarter: 2019Q3

REPORT INFORMATION
  Report Type: Report from Study
  Country: DE (occurrence: DE)
  Receive Date: 20190416
  Receipt Date: 20190930
  Transmission Date: 20191004
  Serious: No
  Sender: FDA-Public Use
  Company Number: DE-ROCHE-2276118

PATIENT
  Age: 57 Year
  Sex: Female

DRUGS (6)
  1. BISOPROLOL [Concomitant]
     Active Substance: BISOPROLOL
  2. OCREVUS [Suspect]
     Active Substance: OCRELIZUMAB
     Indication: SECONDARY PROGRESSIVE MULTIPLE SCLEROSIS
     Route: 042
     Dates: start: 20190312
  3. OCREVUS [Suspect]
     Active Substance: OCRELIZUMAB
     Indication: RELAPSING MULTIPLE SCLEROSIS
     Route: 042
     Dates: start: 20190222
  4. CORTISONE [Suspect]
     Active Substance: CORTISONE
     Indication: PREMEDICATION
     Route: 065
     Dates: start: 20190222
  5. CORTISONE [Suspect]
     Active Substance: CORTISONE
     Route: 065
     Dates: start: 20190312
  6. FAMPYRA [Concomitant]
     Active Substance: DALFAMPRIDINE

REACTIONS (7)
  - Pruritus [Recovered/Resolved]
  - Extra dose administered [Unknown]
  - Dizziness [Recovered/Resolved]
  - Rosacea [Recovering/Resolving]
  - Nausea [Recovered/Resolved]
  - Fatigue [Recovered/Resolved]
  - Urinary tract infection [Recovered/Resolved]

NARRATIVE: CASE EVENT DATE: 20190222
